FAERS Safety Report 10319490 (Version 2)
Quarter: 2014Q4

REPORT INFORMATION
  Report Type: Other
  Country: US (occurrence: US)
  Receive Date: 20140719
  Receipt Date: 20141021
  Transmission Date: 20150528
  Serious: Yes (Death, Hospitalization, Other)
  Sender: FDA-Public Use
  Company Number: US-GSKPPD-2014GSK005075

PATIENT
  Age: 53 Year
  Sex: Female
  Weight: 133.48 kg

DRUGS (8)
  1. CARVEDILOL. [Concomitant]
     Active Substance: CARVEDILOL
  2. DIOVAN [Concomitant]
     Active Substance: VALSARTAN
  3. AVANDIA [Suspect]
     Active Substance: ROSIGLITAZONE MALEATE
     Indication: DIABETES MELLITUS
     Dosage: AVANDIA WAS NOT LISTED AMONG THE PATIENTS RECORDS REVIEWED.
     Route: 048
  4. SPIRONOLACTONE. [Concomitant]
     Active Substance: SPIRONOLACTONE
  5. AVANDAMET [Suspect]
     Active Substance: METFORMIN HYDROCHLORIDE\ROSIGLITAZONE MALEATE
     Indication: DIABETES MELLITUS
     Dosage: 4-500 MG?DATE OF AVANDAMET USE COULD NOT BE CONFIRMED IN RECORDS REVIEWED.
  6. ASPIRIN. [Concomitant]
     Active Substance: ASPIRIN
  7. WARFARIN [Concomitant]
     Active Substance: WARFARIN
  8. AMIODARONE [Concomitant]
     Active Substance: AMIODARONE

REACTIONS (2)
  - Cardiac failure congestive [Recovered/Resolved]
  - Myocardial infarction [Fatal]

NARRATIVE: CASE EVENT DATE: 20090518
